FAERS Safety Report 6144716-8 (Version None)
Quarter: 2009Q2

REPORT INFORMATION
  Report Type: 
  Country: None (occurrence: None)
  Receive Date: 20090406
  Receipt Date: 20090327
  Transmission Date: 20091009
  Serious: Yes (Hospitalization)
  Sender: FDA-Public Use
  Company Number: DE-B.I. PHARMACEUTICALS,INC./RIDGEFIELD-2009-DE-02667DE

PATIENT
  Age: 60 Year
  Sex: Female

DRUGS (6)
  1. SIFROL [Suspect]
     Indication: DEPRESSION
     Dosage: 1.14MG
     Route: 048
     Dates: start: 20080608, end: 20080618
  2. SIFROL [Suspect]
     Dosage: .44MG
     Route: 048
     Dates: start: 20080619, end: 20080624
  3. CARMEN [Concomitant]
     Dosage: 20MG
     Route: 048
     Dates: start: 20071001
  4. TAVOR [Concomitant]
     Dosage: .5MG
     Route: 048
     Dates: start: 20080530
  5. MAGNESIUM SULFATE [Concomitant]
     Dosage: 2 BAGS
     Dates: start: 20080401
  6. PAROXETINE HCL [Concomitant]
     Dosage: 20MG
     Route: 048
     Dates: start: 20080616

REACTIONS (5)
  - ELECTROCARDIOGRAM ST SEGMENT DEPRESSION [None]
  - FATIGUE [None]
  - OFF LABEL USE [None]
  - SENSATION OF HEAVINESS [None]
  - SLEEP DISORDER [None]
